FAERS Safety Report 24782882 (Version 2)
Quarter: 2025Q1

REPORT INFORMATION
  Report Type: Spontaneous
  Country: CN (occurrence: CN)
  Receive Date: 20241227
  Receipt Date: 20250108
  Transmission Date: 20250409
  Serious: Yes (Other)
  Sender: MERCK
  Company Number: CN-009507513-2412CHN008033

PATIENT
  Age: 79 Year
  Sex: Female
  Weight: 75 kg

DRUGS (1)
  1. INVANZ [Suspect]
     Active Substance: ERTAPENEM SODIUM
     Indication: Anti-infective therapy
     Dosage: 1 G, QD
     Route: 041
     Dates: start: 20241123, end: 20241125

REACTIONS (4)
  - Depressed level of consciousness [Unknown]
  - Unresponsive to stimuli [Unknown]
  - Confusional state [Unknown]
  - Listless [Recovering/Resolving]

NARRATIVE: CASE EVENT DATE: 20241125
